FAERS Safety Report 18770884 (Version 1)
Quarter: 2021Q1

REPORT INFORMATION
  Report Type: Spontaneous
  Country: US (occurrence: US)
  Receive Date: 20210121
  Receipt Date: 20210121
  Transmission Date: 20210419
  Serious: No
  Sender: FDA-Public Use
  Company Number: US-ELI_LILLY_AND_COMPANY-US202101008295

PATIENT
  Sex: Female

DRUGS (5)
  1. CENTRUM PERFORMANCE [ASCORBIC ACID;BETACAROTE [Concomitant]
     Indication: PRODUCT USED FOR UNKNOWN INDICATION
     Dosage: 18 MG, UNKNOWN
  2. TALTZ [Suspect]
     Active Substance: IXEKIZUMAB
     Indication: PRODUCT USED FOR UNKNOWN INDICATION
     Dosage: UNK UNK, UNKNOWN
     Route: 065
  3. SKYRIZI [Suspect]
     Active Substance: RISANKIZUMAB-RZAA
     Indication: PSORIASIS
     Dosage: 150 MG, OTHER (AT EVERY FOUR WEEKS)
     Route: 058
  4. CENTRUM PERFORMANCE [ASCORBIC ACID;BETACAROTE [Concomitant]
     Dosage: 0.4 MG, UNKNOWN
  5. ZYRTEC [Concomitant]
     Active Substance: CETIRIZINE HYDROCHLORIDE
     Indication: PRODUCT USED FOR UNKNOWN INDICATION
     Dosage: 10 MG, UNKNOWN

REACTIONS (3)
  - Fungal skin infection [Unknown]
  - Pruritus [Unknown]
  - Skin burning sensation [Unknown]
